FAERS Safety Report 6896173-1 (Version None)
Quarter: 2010Q3

REPORT INFORMATION
  Report Type: 
  Country: None (occurrence: None)
  Receive Date: 20100802
  Receipt Date: 20100722
  Transmission Date: 20110219
  Serious: Yes (Hospitalization)
  Sender: FDA-Public Use
  Company Number: A0867296A

PATIENT
  Age: 43 Year
  Sex: Male
  Weight: 130.9 kg

DRUGS (8)
  1. AVANDIA [Suspect]
     Dosage: 8MG PER DAY
     Route: 048
     Dates: start: 20020101, end: 20050101
  2. AVANDAMET [Suspect]
     Route: 048
     Dates: start: 20030101, end: 20030211
  3. DIOVAN [Concomitant]
  4. PREVACID [Concomitant]
  5. AMARYL [Concomitant]
  6. GLUCOPHAGE [Concomitant]
  7. NORVASC [Concomitant]
  8. INSULIN [Concomitant]

REACTIONS (2)
  - FOOT FRACTURE [None]
  - MYOCARDIAL INFARCTION [None]
